FAERS Safety Report 18974061 (Version 1)
Quarter: 2021Q1

REPORT INFORMATION
  Report Type: Spontaneous
  Country: CA (occurrence: CA)
  Receive Date: 20210305
  Receipt Date: 20210305
  Transmission Date: 20210420
  Serious: Yes (Death, Life-Threatening)
  Sender: FDA-Public Use
  Company Number: CA-ASTRAZENECA-2021A107533

PATIENT
  Sex: Male

DRUGS (11)
  1. HYDROMORPHONE [Concomitant]
     Active Substance: HYDROMORPHONE
  2. TRULICITY [Concomitant]
     Active Substance: DULAGLUTIDE
  3. IMFINZI [Suspect]
     Active Substance: DURVALUMAB
     Route: 042
  4. PANTOPRAZOLE [Concomitant]
     Active Substance: PANTOPRAZOLE
  5. JANUMET [Concomitant]
     Active Substance: METFORMIN HYDROCHLORIDE\SITAGLIPTIN PHOSPHATE
  6. ROSUVASTATIN. [Concomitant]
     Active Substance: ROSUVASTATIN
     Route: 058
  7. ASPIRIN. [Concomitant]
     Active Substance: ASPIRIN
  8. LEVOTHYROXINE. [Concomitant]
     Active Substance: LEVOTHYROXINE
  9. CLOPIDOGREL [Concomitant]
     Active Substance: CLOPIDOGREL BISULFATE
  10. METOPROLOL. [Concomitant]
     Active Substance: METOPROLOL
  11. XARELTO [Concomitant]
     Active Substance: RIVAROXABAN

REACTIONS (11)
  - Skin infection [Fatal]
  - Compression fracture [Fatal]
  - Palpitations [Fatal]
  - Asthenia [Fatal]
  - Blood creatine phosphokinase increased [Fatal]
  - Skin burning sensation [Fatal]
  - Cardiac pacemaker insertion [Fatal]
  - Herpes zoster [Fatal]
  - Atrioventricular block [Fatal]
  - Heart rate irregular [Fatal]
  - Pain [Fatal]
